FAERS Safety Report 5214801-3 (Version None)
Quarter: 2007Q1

REPORT INFORMATION
  Report Type: 
  Country: None (occurrence: None)
  Receive Date: 20061113
  Receipt Date: 20051108
  Transmission Date: 20070707
  Serious: Yes (Other)
  Sender: FDA-Public Use
  Company Number: US-JNJFOC-20051102233

PATIENT
  Sex: Female

DRUGS (2)
  1. LEVAQUIN [Suspect]
  2. CONTRAST DYE (CONTRAST MEDIA) [Concomitant]
     Dosage: INTRAVENOUS
     Route: 042

REACTIONS (1)
  - ANAPHYLACTIC REACTION [None]
